FAERS Safety Report 24055215 (Version 1)
Quarter: 2024Q3

REPORT INFORMATION
  Report Type: Spontaneous
  Country: US (occurrence: None)
  Receive Date: 20240703
  Receipt Date: 20240703
  Transmission Date: 20241017
  Serious: Yes (Hospitalization)
  Sender: Public
  Company Number: None

PATIENT
  Age: 23 Year
  Sex: Male
  Weight: 63 kg

DRUGS (2)
  1. HERBALS\MUSHROOMS UNSPECIFIED [Suspect]
     Active Substance: HERBALS\MUSHROOMS UNSPECIFIED
     Indication: Substance use
     Dosage: 7.5 ATABLETS ONCE ORAL?
     Route: 048
  2. magnolia flower petals [Concomitant]

REACTIONS (7)
  - Psychotic disorder [None]
  - Fall [None]
  - Seizure [None]
  - Loss of consciousness [None]
  - Feeling abnormal [None]
  - Hallucination, visual [None]
  - Self-destructive behaviour [None]

NARRATIVE: CASE EVENT DATE: 20240630
